FAERS Safety Report 4728562-5 (Version None)
Quarter: 2005Q3

REPORT INFORMATION
  Report Type: 
  Country: None (occurrence: None)
  Receive Date: 20050729
  Receipt Date: 20050706
  Transmission Date: 20060218
  Serious: Yes (Death, Other)
  Sender: FDA-Public Use
  Company Number: FR-ABBOTT-05P-056-0305829-00

PATIENT
  Age: 38 Year
  Sex: Male

DRUGS (9)
  1. RITONAVIR [Suspect]
     Indication: HIV INFECTION
     Dosage: NOT REPORTED
     Dates: start: 19961001, end: 19961001
  2. UNSPECIFIED NEUROLEPTICS [Interacting]
     Indication: DRUG USE FOR UNKNOWN INDICATION
     Dosage: NOT REPORTED
  3. LAMIVUDINE [Interacting]
     Indication: HIV INFECTION
     Dosage: NOT REPORTED
     Dates: end: 19961001
  4. LAMIVUDINE [Interacting]
     Dosage: NOT REPORTED
  5. STAVUDINE [Interacting]
     Indication: HIV INFECTION
     Dosage: NOT REPORTED
     Dates: end: 19961001
  6. STAVUDINE [Interacting]
     Dosage: NOT REPORTED
  7. INDINAVIR [Concomitant]
     Indication: HIV INFECTION
     Dosage: NOT REPORTED
  8. DIDANOSINE [Concomitant]
     Indication: HIV INFECTION
     Dosage: NOT REPORTED
     Dates: start: 19950101
  9. METHADONE [Concomitant]
     Indication: DRUG ABUSER
     Dosage: NOT REPORTED

REACTIONS (4)
  - DRUG INTERACTION [None]
  - HEPATIC FAILURE [None]
  - HEPATORENAL SYNDROME [None]
  - RHABDOMYOLYSIS [None]
